FAERS Safety Report 5910172-5 (Version None)
Quarter: 2008Q4

REPORT INFORMATION
  Report Type: 
  Country: None (occurrence: None)
  Receive Date: 20081007
  Receipt Date: 20071113
  Transmission Date: 20090506
  Serious: Yes (Hospitalization)
  Sender: FDA-Public Use
  Company Number: US-ASTRAZENECA-2007UW22442

PATIENT
  Age: 64 Year
  Sex: Female

DRUGS (1)
  1. ARIMIDEX [Suspect]

REACTIONS (6)
  - BACK PAIN [None]
  - COUGH [None]
  - HOT FLUSH [None]
  - LYMPHOEDEMA [None]
  - OROPHARYNGEAL PAIN [None]
  - WEIGHT INCREASED [None]
